FAERS Safety Report 6218664-9 (Version None)
Quarter: 2009Q2

REPORT INFORMATION
  Report Type: 
  Country: None (occurrence: None)
  Receive Date: 20090608
  Receipt Date: 20090528
  Transmission Date: 20091009
  Serious: Yes (Other)
  Sender: FDA-Public Use
  Company Number: AU-AMGEN-QUU348868

PATIENT
  Age: 12 Year

DRUGS (1)
  1. NEUPOGEN [Suspect]
     Indication: BONE MARROW TRANSPLANT
     Route: 058

REACTIONS (1)
  - INJECTION SITE RASH [None]
